FAERS Safety Report 17008703 (Version 1)
Quarter: 2019Q4

REPORT INFORMATION
  Report Type: Spontaneous
  Country: US (occurrence: US)
  Receive Date: 20190930
  Receipt Date: 20190930
  Transmission Date: 20200122
  Serious: No
  Sender: FDA-Public Use
  Company Number: None

PATIENT
  Age: 54 Year
  Sex: Female

DRUGS (1)
  1. REPATHA [Suspect]
     Active Substance: EVOLOCUMAB
     Indication: HYPERLIPIDAEMIA
     Dosage: ?          OTHER ROUTE:UNDER THE SKIN?
     Dates: start: 20190702, end: 20190816

REACTIONS (7)
  - Abdominal pain [None]
  - Musculoskeletal disorder [None]
  - Joint effusion [None]
  - Gastrointestinal disorder [None]
  - Diarrhoea [None]
  - Pain in extremity [None]
  - Joint swelling [None]

NARRATIVE: CASE EVENT DATE: 20190730
